FAERS Safety Report 4625767-9 (Version None)
Quarter: 2005Q1

REPORT INFORMATION
  Report Type: 
  Country: None (occurrence: None)
  Receive Date: 20050330
  Receipt Date: 20050316
  Transmission Date: 20050727
  Serious: Yes (Death)
  Sender: FDA-Public Use
  Company Number: EWC050343214

PATIENT
  Age: 64 Year
  Sex: Male

DRUGS (3)
  1. ZYPREXA [Suspect]
     Indication: BIPOLAR DISORDER
     Dosage: 10 MG/1 DAY
     Dates: start: 20050223, end: 20050201
  2. ZINACEF [Concomitant]
  3. SEROQUEL [Concomitant]

REACTIONS (2)
  - PNEUMONIA [None]
  - SHOCK [None]
